FAERS Safety Report 16495334 (Version 1)
Quarter: 2019Q2

REPORT INFORMATION
  Report Type: Spontaneous
  Country: BR (occurrence: BR)
  Receive Date: 20190628
  Receipt Date: 20190628
  Transmission Date: 20190711
  Serious: Yes (Hospitalization, Other)
  Sender: FDA-Public Use
  Company Number: BR-PFIZER INC-2019240508

PATIENT
  Age: 61 Year
  Sex: Female

DRUGS (1)
  1. SUTENT [Suspect]
     Active Substance: SUNITINIB MALATE
     Dosage: UNK UNK, CYCLIC (FOR 28 DAYS AND PAUSE FOR 2 WEEKS)
     Dates: start: 20190409, end: 20190605

REACTIONS (7)
  - Confusional state [Unknown]
  - Diarrhoea [Unknown]
  - Infection [Recovering/Resolving]
  - Eye swelling [Unknown]
  - Weight decreased [Unknown]
  - Feeling abnormal [Unknown]
  - Asthenia [Unknown]
